FAERS Safety Report 22661416 (Version 1)
Quarter: 2023Q2

REPORT INFORMATION
  Report Type: Spontaneous
  Country: IL (occurrence: IL)
  Receive Date: 20230630
  Receipt Date: 20230630
  Transmission Date: 20230722
  Serious: No
  Sender: FDA-Public Use
  Company Number: IL-GW PHARMA-2022-IL-034959

PATIENT
  Sex: Female

DRUGS (2)
  1. EPIDIOLEX [Suspect]
     Active Substance: CANNABIDIOL
     Indication: Lennox-Gastaut syndrome
     Dosage: 5 MILLIGRAM
     Dates: start: 20221003
  2. EPIDIOLEX [Suspect]
     Active Substance: CANNABIDIOL
     Dosage: 10 MILLIGRAM
     Dates: start: 20221109

REACTIONS (2)
  - Erythema [Unknown]
  - Exposure during pregnancy [Unknown]

NARRATIVE: CASE EVENT DATE: 20220101
